FAERS Safety Report 9710458 (Version 1)
Quarter: 2013Q4

REPORT INFORMATION
  Report Type: Spontaneous
  Country: US (occurrence: US)
  Receive Date: 20131126
  Receipt Date: 20131126
  Transmission Date: 20140711
  Serious: No
  Sender: FDA-Public Use
  Company Number: US-BRISTOL-MYERS SQUIBB COMPANY-19422302

PATIENT
  Age: 78 Year
  Sex: Female
  Weight: 78.23 kg

DRUGS (2)
  1. BYDUREON [Suspect]
     Indication: TYPE 2 DIABETES MELLITUS
     Dates: start: 20130904
  2. JANUMET [Concomitant]
     Dosage: 1DF:100/1000MG
     Route: 048

REACTIONS (1)
  - Injection site pain [Recovering/Resolving]
